FAERS Safety Report 17568366 (Version 4)
Quarter: 2020Q2

REPORT INFORMATION
  Report Type: Report from Study
  Country: US (occurrence: US)
  Receive Date: 20200320
  Receipt Date: 20200522
  Transmission Date: 20200713
  Serious: Yes (Hospitalization, Other)
  Sender: FDA-Public Use
  Company Number: US-EXELIXIS-XL18420028259

PATIENT

DRUGS (29)
  1. METOPROLOL SUCCINATE. [Concomitant]
     Active Substance: METOPROLOL SUCCINATE
  2. LISINOPRIL. [Concomitant]
     Active Substance: LISINOPRIL
  3. LASIX [Concomitant]
     Active Substance: FUROSEMIDE
  4. COMPAZINE [Concomitant]
     Active Substance: PROCHLORPERAZINE MALEATE
  5. PREVACID [Concomitant]
     Active Substance: LANSOPRAZOLE
  6. PRILOSEC [Concomitant]
     Active Substance: OMEPRAZOLE MAGNESIUM
  7. XL184 [Suspect]
     Active Substance: CABOZANTINIB
     Dosage: 40 MG, QD
     Route: 048
     Dates: start: 20200317, end: 20200414
  8. NIVOLUMAB [Suspect]
     Active Substance: NIVOLUMAB
     Indication: RENAL CELL CARCINOMA
     Dosage: 280 MG((CYCLE X 4 CYCLES:1240 MG)
     Route: 042
     Dates: start: 20191107, end: 20200110
  9. ENSURE [Concomitant]
     Active Substance: AMINO ACIDS\DEXTROSE\ELECTROLYTES NOS\SOYBEAN OIL\VITAMINS
  10. DULCOLAX NOS [Concomitant]
     Active Substance: BISACODYL OR DOCUSATE SODIUM
  11. XL184 [Suspect]
     Active Substance: CABOZANTINIB
     Indication: RENAL CELL CARCINOMA
     Dosage: 60 MG, QD
     Route: 048
     Dates: start: 20200210, end: 20200223
  12. ACETAMINOPHEN;HYDROCODONE [Concomitant]
     Active Substance: ACETAMINOPHEN\HYDROCODONE
  13. XALATAN [Concomitant]
     Active Substance: LATANOPROST
  14. NEURONTIN [Concomitant]
     Active Substance: GABAPENTIN
  15. MAGNESIUM OXIDE. [Concomitant]
     Active Substance: MAGNESIUM OXIDE
  16. AMBIEN [Concomitant]
     Active Substance: ZOLPIDEM TARTRATE
  17. ATIVAN [Concomitant]
     Active Substance: LORAZEPAM
  18. SENNA PLUS [Concomitant]
     Active Substance: DOCUSATE SODIUM\SENNOSIDES\SENNOSIDES A AND B
  19. ACETYLSALICYLIC ACID [Concomitant]
     Active Substance: ASPIRIN
  20. MELATONIN [Concomitant]
     Active Substance: MELATONIN
  21. LIPITOR [Concomitant]
     Active Substance: ATORVASTATIN CALCIUM
  22. MIRALAX [Concomitant]
     Active Substance: POLYETHYLENE GLYCOL 3350
  23. ALDACTONE [Concomitant]
     Active Substance: SPIRONOLACTONE
  24. IPILIMUMAB [Suspect]
     Active Substance: IPILIMUMAB
     Indication: RENAL CELL CARCINOMA
     Dosage: 93.6 MG PER CYCLE, TOTAL OF 374.4 MG
     Route: 042
     Dates: start: 20191107, end: 20200110
  25. FUROSEMIDE. [Concomitant]
     Active Substance: FUROSEMIDE
  26. LIDOCAINE. [Concomitant]
     Active Substance: LIDOCAINE
  27. INSULIN GLARGINE [Concomitant]
     Active Substance: INSULIN GLARGINE
  28. KEPPRA [Concomitant]
     Active Substance: LEVETIRACETAM
  29. ALBUTEROL SULFATE. [Concomitant]
     Active Substance: ALBUTEROL SULFATE

REACTIONS (7)
  - Encephalopathy [Not Recovered/Not Resolved]
  - Hepatotoxicity [Recovering/Resolving]
  - Muscular weakness [Not Recovered/Not Resolved]
  - Weight decreased [Recovering/Resolving]
  - Confusional state [Recovering/Resolving]
  - Decreased appetite [Recovering/Resolving]
  - Hypotension [Recovered/Resolved]

NARRATIVE: CASE EVENT DATE: 202002
